FAERS Safety Report 10198765 (Version 1)
Quarter: 2014Q2

REPORT INFORMATION
  Report Type: Spontaneous
  Country: US (occurrence: None)
  Receive Date: 20140523
  Receipt Date: 20140523
  Transmission Date: 20141212
  Serious: No
  Sender: FDA-Public Use
  Company Number: None

PATIENT
  Age: 36 Year
  Sex: Female
  Weight: 54.43 kg

DRUGS (3)
  1. TOBRAMYCIN [Suspect]
     Indication: BACTERIAL INFECTION
     Dosage: 2 DROPS 4 TIMES A DAY INTO THE EYE
     Dates: start: 20140517, end: 20140517
  2. TOBRAMYCIN [Suspect]
     Indication: EYE INJURY
     Dosage: 2 DROPS 4 TIMES A DAY INTO THE EYE
     Dates: start: 20140517, end: 20140517
  3. TOBRAMYCIN [Suspect]
     Indication: PROPHYLAXIS
     Dosage: 2 DROPS 4 TIMES A DAY INTO THE EYE
     Dates: start: 20140517, end: 20140517

REACTIONS (8)
  - Eye irritation [None]
  - Impaired driving ability [None]
  - Application site vesicles [None]
  - Burning sensation [None]
  - Chemical injury [None]
  - Hair disorder [None]
  - Hypersensitivity [None]
  - Product formulation issue [None]
